FAERS Safety Report 17195538 (Version 3)
Quarter: 2019Q4

REPORT INFORMATION
  Report Type: Spontaneous
  Country: US (occurrence: US)
  Receive Date: 20191224
  Receipt Date: 20191228
  Transmission Date: 20200122
  Serious: Yes (Hospitalization)
  Sender: FDA-Public Use
  Company Number: US-UNITED THERAPEUTICS-UNT-2019-019070

PATIENT
  Age: 45 Year
  Sex: Male
  Weight: 131.52 kg

DRUGS (4)
  1. REMODULIN [Suspect]
     Active Substance: TREPROSTINIL
     Indication: PULMONARY ARTERIAL HYPERTENSION
     Dosage: 0.03 ?G/KG, CONTINUING
     Route: 041
     Dates: start: 20190718
  2. REMODULIN [Suspect]
     Active Substance: TREPROSTINIL
     Dosage: 0.036 ?G/KG, CONTINUING
     Route: 041
  3. REMODULIN [Suspect]
     Active Substance: TREPROSTINIL
     Indication: PULMONARY ARTERIAL HYPERTENSION
     Dosage: 0.030 ?G/KG, CONTINUING
     Route: 041
     Dates: start: 20190718
  4. ADEMPAS [Concomitant]
     Active Substance: RIOCIGUAT
     Indication: PRODUCT USED FOR UNKNOWN INDICATION
     Dosage: UNK
     Route: 065

REACTIONS (16)
  - Depressed mood [Unknown]
  - Blood pressure decreased [Unknown]
  - Arthralgia [Unknown]
  - Diarrhoea [Recovered/Resolved]
  - Nausea [Recovered/Resolved]
  - Influenza like illness [Unknown]
  - Pain in jaw [Unknown]
  - Headache [Unknown]
  - Paraesthesia [Unknown]
  - Vomiting [Recovered/Resolved]
  - Flatulence [Unknown]
  - Oxygen saturation decreased [Not Recovered/Not Resolved]
  - Feeling abnormal [Unknown]
  - Dyspnoea exertional [Not Recovered/Not Resolved]
  - Dizziness [Unknown]
  - Pyrexia [Recovered/Resolved]

NARRATIVE: CASE EVENT DATE: 2019
